FAERS Safety Report 22964649 (Version 3)
Quarter: 2023Q4

REPORT INFORMATION
  Report Type: Spontaneous
  Country: US (occurrence: None)
  Receive Date: 20230921
  Receipt Date: 20231003
  Transmission Date: 20240110
  Serious: Yes (Other)
  Sender: FDA-Public Use
  Company Number: US-ROCHE-3424716

PATIENT
  Age: 62 Year
  Sex: Male
  Weight: 83.99 kg

DRUGS (5)
  1. VABYSMO [Suspect]
     Active Substance: FARICIMAB-SVOA
     Indication: Diabetic retinal oedema
     Dosage: LAST DOSE OF VABYSMO WAS ON 13-SEP-2023
     Route: 047
     Dates: start: 20230503
  2. AVASTIN [Suspect]
     Active Substance: BEVACIZUMAB
     Indication: Diabetic retinal oedema
     Route: 031
  3. EYLEA [Concomitant]
     Active Substance: AFLIBERCEPT
  4. LANTUS [Concomitant]
     Active Substance: INSULIN GLARGINE
  5. INSULIN NOS [Concomitant]
     Active Substance: INSULIN NOS

REACTIONS (9)
  - Cataract [Recovering/Resolving]
  - Retinitis [Unknown]
  - Neuropathy peripheral [Unknown]
  - Nephropathy [Unknown]
  - Asthenia [Unknown]
  - Lens discolouration [Unknown]
  - Disease progression [Unknown]
  - Visual acuity reduced [Unknown]
  - Off label use [Unknown]

NARRATIVE: CASE EVENT DATE: 20230503
